FAERS Safety Report 9486290 (Version 1)
Quarter: 2013Q3

REPORT INFORMATION
  Report Type: Spontaneous
  Country: US (occurrence: None)
  Receive Date: 20130827
  Receipt Date: 20130827
  Transmission Date: 20140515
  Serious: No
  Sender: FDA-Public Use
  Company Number: None

PATIENT
  Age: 62 Year
  Sex: Female
  Weight: 81.65 kg

DRUGS (1)
  1. CLONIDINE HCL [Suspect]
     Indication: HYPERTENSION
     Dosage: 0.1 MG ONCE DAILY TAKEN BY MOUTH
     Route: 048
     Dates: start: 20130724, end: 20130825

REACTIONS (4)
  - Headache [None]
  - Dizziness [None]
  - Dry mouth [None]
  - Insomnia [None]
